FAERS Safety Report 5360511-1 (Version None)
Quarter: 2007Q2

REPORT INFORMATION
  Report Type: 
  Country: None (occurrence: None)
  Receive Date: 20070618
  Receipt Date: 20070608
  Transmission Date: 20071010
  Serious: Yes (Hospitalization)
  Sender: FDA-Public Use
  Company Number: B0474585A

PATIENT
  Age: 84 Year
  Sex: Female
  Weight: 39 kg

DRUGS (7)
  1. LAMICTAL [Suspect]
     Dosage: 1UNIT THREE TIMES PER DAY
     Route: 048
  2. COUMADIN [Suspect]
     Dosage: 1UNIT PER DAY
     Route: 048
  3. LORAZEPAM [Suspect]
     Dosage: 1UNIT PER DAY
     Route: 048
  4. ATHYMIL [Suspect]
     Route: 048
  5. AMLOR [Suspect]
     Dosage: 1UNIT PER DAY
     Route: 048
  6. TAHOR [Suspect]
     Route: 048
  7. OMEPRAZOLE [Concomitant]
     Route: 065

REACTIONS (4)
  - BLOOD ALKALINE PHOSPHATASE INCREASED [None]
  - BLOOD TRIGLYCERIDES INCREASED [None]
  - GAMMA-GLUTAMYLTRANSFERASE INCREASED [None]
  - HEPATIC ENZYME INCREASED [None]
